FAERS Safety Report 8163798-5 (Version None)
Quarter: 2012Q1

REPORT INFORMATION
  Report Type: 
  Country: None (occurrence: None)
  Receive Date: 20120224
  Receipt Date: 20120220
  Transmission Date: 20120608
  Serious: Yes (Hospitalization, Other)
  Sender: FDA-Public Use
  Company Number: PHHY2012GR004875

PATIENT
  Sex: Male

DRUGS (1)
  1. ILARIS [Suspect]
     Indication: JUVENILE ARTHRITIS
     Dosage: 2 MG/KG, MONTHLY
     Dates: start: 20110901

REACTIONS (1)
  - HERPES ZOSTER [None]
